FAERS Safety Report 13254817 (Version 1)
Quarter: 2017Q1

REPORT INFORMATION
  Report Type: Spontaneous
  Country: US (occurrence: US)
  Receive Date: 20170217
  Receipt Date: 20170217
  Transmission Date: 20170428
  Serious: No
  Sender: FDA-Public Use
  Company Number: None

PATIENT
  Age: 81 Year
  Sex: Male
  Weight: 98.1 kg

DRUGS (1)
  1. FORTEO [Suspect]
     Active Substance: TERIPARATIDE
     Indication: RHEUMATOID ARTHRITIS
     Dosage: 20 IG MICROGRAM(S) DAILY SUBCUTANEOUS
     Route: 058
     Dates: start: 20160729

REACTIONS (1)
  - Rash [None]

NARRATIVE: CASE EVENT DATE: 20170217
